FAERS Safety Report 4322219-0 (Version None)
Quarter: 2004Q1

REPORT INFORMATION
  Report Type: 
  Country: None (occurrence: None)
  Receive Date: 20040319
  Receipt Date: 20040302
  Transmission Date: 20041129
  Serious: Yes (Other)
  Sender: FDA-Public Use
  Company Number: US012649

PATIENT
  Age: 59 Year
  Sex: Female

DRUGS (1)
  1. ACTIQ [Suspect]
     Indication: BACK PAIN
     Dosage: NI
     Dates: start: 20010101

REACTIONS (5)
  - HYPERPLASIA [None]
  - INFLAMMATION [None]
  - MOUTH ULCERATION [None]
  - PYOGENIC GRANULOMA [None]
  - TONGUE ULCERATION [None]
